FAERS Safety Report 8781373 (Version 3)
Quarter: 2013Q3

REPORT INFORMATION
  Report Type: Report from Study
  Country: NL (occurrence: NL)
  Receive Date: 20120913
  Receipt Date: 20130927
  Transmission Date: 20140515
  Serious: Yes (Hospitalization)
  Sender: FDA-Public Use
  Company Number: NL-009507513-1209NLD003864

PATIENT
  Age: 12 Year
  Sex: Male
  Weight: 45 kg

DRUGS (32)
  1. TEMOZOLOMIDE [Suspect]
     Indication: BRAIN NEOPLASM MALIGNANT
     Dosage: 100 MG DAILY
     Route: 048
     Dates: start: 20120116, end: 20120221
  2. TEMOZOLOMIDE [Suspect]
     Dosage: UNK
     Route: 048
     Dates: start: 20120326, end: 20120330
  3. DEXAMETHASONE [Concomitant]
     Dosage: 2.5 MG, ONCE
     Route: 048
     Dates: start: 20120124, end: 20120125
  4. DEXAMETHASONE [Concomitant]
     Dosage: 2 MG, BID
     Route: 048
     Dates: start: 20120125, end: 20120126
  5. DEXAMETHASONE [Concomitant]
     Dosage: 4 MG, TID
     Route: 048
     Dates: start: 20120126, end: 20120130
  6. DEXAMETHASONE [Concomitant]
     Dosage: 3 MG, TID
     Route: 048
     Dates: start: 20120130, end: 20120214
  7. DEXAMETHASONE [Concomitant]
     Dosage: 2 MG, TID
     Route: 048
     Dates: start: 20120214, end: 20120216
  8. DEXAMETHASONE [Concomitant]
     Dosage: 1.5 MG, TID
     Route: 048
     Dates: start: 20120216, end: 20120224
  9. DEXAMETHASONE [Concomitant]
     Dosage: 1 MG, TID
     Route: 048
  10. DEXAMETHASONE [Concomitant]
     Dosage: 2.5 MG, ONCE
     Route: 048
  11. DEXAMETHASONE [Concomitant]
     Dosage: 2 MG, BID
     Route: 048
  12. DEXAMETHASONE [Concomitant]
     Dosage: 4 MG, TID
     Route: 048
  13. DEXAMETHASONE [Concomitant]
     Dosage: 3 MG, TID
     Route: 048
  14. DEXAMETHASONE [Concomitant]
     Dosage: 2 MG, TID
     Route: 048
  15. DEXAMETHASONE [Concomitant]
     Dosage: 1.5 MG, TID
     Route: 048
  16. DEXAMETHASONE [Concomitant]
     Dosage: 1 MG, TID
     Route: 048
  17. DEXAMETHASONE [Concomitant]
     Dosage: 1.5 MG, TID
     Route: 048
  18. DEXAMETHASONE [Concomitant]
     Dosage: 0.5 MG, TID
     Route: 048
  19. DEXAMETHASONE [Concomitant]
     Dosage: 0.5 MG, BID
     Route: 048
  20. DEXAMETHASONE [Concomitant]
     Dosage: 0.5 MG, QD
     Route: 048
  21. DEXAMETHASONE [Concomitant]
     Dosage: 8 MG, BID
     Route: 048
  22. DEXAMETHASONE [Concomitant]
     Dosage: 6 MG, QD
     Route: 048
  23. DEXAMETHASONE [Concomitant]
     Dosage: 3 MG, QD
     Route: 048
  24. OMEPRAZOLE [Concomitant]
     Dosage: DAILY DOSE = 20 MG
     Dates: start: 20120123, end: 20120126
  25. OMEPRAZOLE [Concomitant]
     Dosage: DAILY DOSE = 20 MG
     Dates: start: 20120214, end: 20120214
  26. KYTRIL [Concomitant]
     Indication: PROPHYLAXIS
     Dosage: UNK
     Dates: start: 20120124
  27. KYTRIL [Concomitant]
     Dosage: UNK
     Dates: start: 20120131, end: 20120221
  28. ACETAMINOPHEN [Concomitant]
     Dosage: UNK
     Dates: start: 20120116, end: 20120119
  29. DULCOLAX [Concomitant]
     Dosage: UNK
     Dates: start: 20120125, end: 20120125
  30. SOFRADEX [Concomitant]
  31. KLYX [Concomitant]
  32. TRAMADOL HYDROCHLORIDE [Concomitant]

REACTIONS (2)
  - Haematuria traumatic [Recovered/Resolved]
  - Thrombocytopenia [Recovered/Resolved]
